FAERS Safety Report 7797751-8 (Version None)
Quarter: 2011Q4

REPORT INFORMATION
  Report Type: 
  Country: None (occurrence: None)
  Receive Date: 20111005
  Receipt Date: 20110922
  Transmission Date: 20120403
  Serious: Yes (Disabling, Other)
  Sender: FDA-Public Use
  Company Number: PHBS2007BR10970

PATIENT
  Age: 36 Year
  Sex: Male
  Weight: 102 kg

DRUGS (1)
  1. FORMOTEROL FUMARATE [Suspect]
     Indication: ASTHMA
     Dosage: 1 DF, Q12H

REACTIONS (12)
  - PAIN IN EXTREMITY [None]
  - TOOTH DISORDER [None]
  - ASTHMA [None]
  - HEADACHE [None]
  - TOOTHACHE [None]
  - MUSCLE DISORDER [None]
  - MUSCLE SPASMS [None]
  - DRUG INEFFECTIVE [None]
  - WEIGHT INCREASED [None]
  - OEDEMA PERIPHERAL [None]
  - OEDEMA MOUTH [None]
  - COORDINATION ABNORMAL [None]
